FAERS Safety Report 6969087-6 (Version None)
Quarter: 2010Q3

REPORT INFORMATION
  Report Type: 
  Country: None (occurrence: None)
  Receive Date: 20100907
  Receipt Date: 20100826
  Transmission Date: 20110219
  Serious: Yes (Hospitalization)
  Sender: FDA-Public Use
  Company Number: FR-BRISTOL-MYERS SQUIBB COMPANY-15268972

PATIENT
  Age: 55 Year
  Sex: Male

DRUGS (8)
  1. GLUCOPHAGE [Suspect]
     Route: 048
     Dates: end: 20100530
  2. BYETTA [Suspect]
     Dosage: 10MG BID:MAY2010 TO 30MAY2010 SOLN FOR INJ
     Route: 058
     Dates: start: 20100201, end: 20100501
  3. CRESTOR [Suspect]
     Dosage: TABLET
     Route: 048
     Dates: end: 20100530
  4. PLAVIX [Suspect]
     Dosage: TABLET
     Route: 048
     Dates: end: 20100530
  5. TRIATEC [Suspect]
     Dosage: TABLET
     Route: 048
     Dates: end: 20100530
  6. NOVONORM [Concomitant]
  7. CELESTONE [Concomitant]
  8. OROCAL [Concomitant]

REACTIONS (1)
  - PANCREATITIS [None]
